FAERS Safety Report 25845223 (Version 3)
Quarter: 2025Q4

REPORT INFORMATION
  Report Type: Report from Study
  Country: IN (occurrence: IN)
  Receive Date: 20250925
  Receipt Date: 20251007
  Transmission Date: 20260118
  Serious: Yes (Hospitalization, Other)
  Sender: Vantive US Healthcare
  Company Number: IN-VANTIVE-2025VAN003076

PATIENT
  Age: 59 Year
  Sex: Male

DRUGS (2)
  1. DIANEAL PD-2 PERITONEAL DIALYSIS SOLUTION WITH DEXTROSE [Suspect]
     Active Substance: CALCIUM CHLORIDE\DEXTROSE\MAGNESIUM CHLORIDE\SODIUM CHLORIDE\SODIUM LACTATE
     Indication: Renal failure
     Dosage: 3 BAGS PER DAY
     Route: 033
     Dates: end: 20250921
  2. UNSPECIFIED INGREDIENT [Suspect]
     Active Substance: UNSPECIFIED INGREDIENT
     Dosage: UNK
     Route: 065

REACTIONS (11)
  - Calcinosis [Recovering/Resolving]
  - Oedema peripheral [Recovering/Resolving]
  - Peritonitis [Recovered/Resolved]
  - Abdominal pain [Recovered/Resolved]
  - Vomiting [Recovered/Resolved]
  - Peritoneal cloudy effluent [Recovered/Resolved]
  - Dyspnoea [Recovered/Resolved]
  - Hypervolaemia [Recovered/Resolved]
  - Dyspnoea [Recovering/Resolving]
  - Haemoglobin decreased [Recovered/Resolved]
  - Asthenia [Recovered/Resolved]
